FAERS Safety Report 6714529-4 (Version None)
Quarter: 2010Q2

REPORT INFORMATION
  Report Type: 
  Country: None (occurrence: None)
  Receive Date: 20100506
  Receipt Date: 20100503
  Transmission Date: 20101027
  Serious: Yes (Hospitalization)
  Sender: FDA-Public Use
  Company Number: US-GILEAD-2010-0028804

PATIENT
  Sex: Female

DRUGS (10)
  1. LETAIRIS [Suspect]
     Indication: PULMONARY ARTERIAL HYPERTENSION
     Dates: start: 20100303
  2. DIGOXIN [Concomitant]
  3. LASIX [Concomitant]
  4. ARIMIDEX [Concomitant]
  5. URSO 250 [Concomitant]
  6. LEVOTHYROXINE SODIUM [Concomitant]
  7. ALLOPURINOL [Concomitant]
  8. OMEPRAZOLE [Concomitant]
  9. OXYGEN [Concomitant]
  10. KLOR-CON [Concomitant]

REACTIONS (1)
  - PNEUMONIA [None]
